FAERS Safety Report 5021833-7 (Version None)
Quarter: 2006Q2

REPORT INFORMATION
  Report Type: 
  Country: None (occurrence: None)
  Receive Date: 20060609
  Receipt Date: 20060531
  Transmission Date: 20061013
  Serious: Yes (Hospitalization)
  Sender: FDA-Public Use
  Company Number: US-SOLVAY-00206001809

PATIENT
  Age: 63 Year
  Sex: Male
  Weight: 109 kg

DRUGS (5)
  1. ASPIRIN [Concomitant]
     Indication: GENERAL SYMPTOM
     Dosage: DAILY DOSE: 81 MILLIGRAM(S)
     Route: 048
     Dates: start: 20051101
  2. ANDROGEL [Suspect]
     Indication: BLOOD TESTOSTERONE DECREASED
     Dosage: DAILY DOSE: 5 GRAM(S)
     Route: 062
     Dates: start: 20050701, end: 20060101
  3. ANDROGEL [Suspect]
     Dosage: DAILY DOSE: 10 GRAM(S)
     Route: 062
     Dates: start: 20060101, end: 20060201
  4. ANDROGEL [Suspect]
     Dosage: DAILY DOSE: 5 GRAM(S)
     Route: 062
     Dates: start: 20060201, end: 20060501
  5. ANDROGEL [Suspect]
     Dosage: DAILY DOSE: 2.5 GRAM(S)
     Route: 062
     Dates: start: 20060501

REACTIONS (4)
  - CARDIAC DISORDER [None]
  - DRUG INEFFECTIVE [None]
  - FEELING ABNORMAL [None]
  - LOSS OF CONSCIOUSNESS [None]
